FAERS Safety Report 26116757 (Version 1)
Quarter: 2025Q4

REPORT INFORMATION
  Report Type: Spontaneous
  Country: US (occurrence: None)
  Receive Date: 20251203
  Receipt Date: 20251203
  Transmission Date: 20260117
  Serious: Yes (Hospitalization, Other)
  Sender: ENDO
  Company Number: US-ENDO USA, INC.-2025-002350

PATIENT
  Age: 63 Year
  Sex: Male

DRUGS (4)
  1. TRETINOIN [Suspect]
     Active Substance: TRETINOIN
     Indication: Acute promyelocytic leukaemia
     Dosage: UNK UNKNOWN, UNKNOWN
     Route: 065
  2. TRETINOIN [Suspect]
     Active Substance: TRETINOIN
     Dosage: UNK UNKNOWN, UNKNOWN (2 WEEKS ON AND 2 WEEKS OFF)
     Route: 065
  3. ARSENIC TRIOXIDE [Suspect]
     Active Substance: ARSENIC TRIOXIDE
     Indication: Acute promyelocytic leukaemia
     Dosage: UNK UNKNOWN, UNKNOWN
     Route: 065
  4. ARSENIC TRIOXIDE [Suspect]
     Active Substance: ARSENIC TRIOXIDE
     Dosage: UNK UNKNOWN, UNKNOWN (50% DOSE FOR 3 CYCLES)
     Route: 065

REACTIONS (2)
  - Guillain-Barre syndrome [Recovering/Resolving]
  - Differentiation syndrome [Recovered/Resolved]
